FAERS Safety Report 9383656 (Version 1)
Quarter: 2013Q3

REPORT INFORMATION
  Report Type: Spontaneous
  Country: FR (occurrence: FR)
  Receive Date: 20130704
  Receipt Date: 20130704
  Transmission Date: 20140515
  Serious: Yes (Other)
  Sender: FDA-Public Use
  Company Number: FR-JNJFOC-20130615298

PATIENT
  Age: 54 Year
  Sex: Female
  Weight: 74 kg

DRUGS (3)
  1. XARELTO [Suspect]
     Indication: EMBOLISM VENOUS
     Route: 048
     Dates: start: 20130522, end: 20130523
  2. XARELTO [Suspect]
     Indication: VENOUS THROMBOSIS
     Route: 048
     Dates: start: 20130522, end: 20130523
  3. LEVOTHYROX [Concomitant]
     Route: 048
     Dates: start: 2010

REACTIONS (6)
  - Headache [Recovered/Resolved]
  - Nausea [Recovered/Resolved]
  - Dry mouth [Recovered/Resolved]
  - Bradyphrenia [Recovered/Resolved]
  - Somnolence [Unknown]
  - Off label use [Unknown]
